FAERS Safety Report 6273805-2 (Version None)
Quarter: 2009Q3

REPORT INFORMATION
  Report Type: 
  Country: None (occurrence: None)
  Receive Date: 20090720
  Receipt Date: 20090709
  Transmission Date: 20100115
  Serious: Yes (Hospitalization)
  Sender: FDA-Public Use
  Company Number: B0584328A

PATIENT
  Age: 48 Year
  Sex: Male

DRUGS (2)
  1. AMOXICILLIN [Suspect]
     Indication: OTITIS MEDIA
     Route: 065
  2. PARACETAMOL [Suspect]
     Indication: OTITIS MEDIA
     Route: 065

REACTIONS (12)
  - ACANTHOSIS [None]
  - ACUTE GENERALISED EXANTHEMATOUS PUSTULOSIS [None]
  - ALANINE AMINOTRANSFERASE INCREASED [None]
  - C-REACTIVE PROTEIN INCREASED [None]
  - GAMMA-GLUTAMYLTRANSFERASE INCREASED [None]
  - HEPATOMEGALY [None]
  - LEUKOCYTOSIS [None]
  - MUCOSAL EROSION [None]
  - NEUTROPHILIA [None]
  - PYREXIA [None]
  - RASH PUSTULAR [None]
  - SKIN LESION [None]
